FAERS Safety Report 9693902 (Version 1)
Quarter: 2013Q4

REPORT INFORMATION
  Report Type: Spontaneous
  Country: US (occurrence: US)
  Receive Date: 20131118
  Receipt Date: 20131118
  Transmission Date: 20140711
  Serious: Yes (Other)
  Sender: FDA-Public Use
  Company Number: US-PFIZER INC-2013327287

PATIENT
  Age: 77 Year
  Sex: Female
  Weight: 65.76 kg

DRUGS (3)
  1. PRISTIQ [Suspect]
     Indication: DEPRESSION
     Dosage: 100 MG, 1X/DAY
     Route: 048
     Dates: start: 2010
  2. BUSPIRONE [Concomitant]
     Dosage: 15 MG, UNK
  3. GABAPENTIN [Concomitant]
     Dosage: UNK

REACTIONS (5)
  - Musculoskeletal disorder [Unknown]
  - Drug effect incomplete [Not Recovered/Not Resolved]
  - Feeling abnormal [Not Recovered/Not Resolved]
  - Depression [Not Recovered/Not Resolved]
  - Crying [Not Recovered/Not Resolved]
